FAERS Safety Report 4774088-2 (Version None)
Quarter: 2005Q3

REPORT INFORMATION
  Report Type: 
  Country: None (occurrence: None)
  Receive Date: 20050919
  Receipt Date: 20050908
  Transmission Date: 20060218
  Serious: Yes (Hospitalization)
  Sender: FDA-Public Use
  Company Number: 200510563BNE

PATIENT
  Age: 70 Year
  Sex: Female

DRUGS (11)
  1. MOXIFLOXACIN HCL [Suspect]
     Indication: CHRONIC OBSTRUCTIVE PULMONARY DISEASE
     Dosage: 400 MG, TOTAL DAILY, ORAL
     Route: 048
     Dates: start: 20050810, end: 20050812
  2. OMEPRAZOLE [Concomitant]
  3. CALCICHEW [Concomitant]
  4. FUROSEMIDE [Concomitant]
  5. ISOSORBIDE MONONITRATE [Concomitant]
  6. PRAVASTIN [Concomitant]
  7. DIGOXIN [Concomitant]
  8. QUININE SULPHATE [Concomitant]
  9. ALENDRONIC ACID [Concomitant]
  10. PREDNISOLONE [Concomitant]
  11. COMBIVENT [Concomitant]

REACTIONS (1)
  - DIARRHOEA HAEMORRHAGIC [None]
